FAERS Safety Report 9140501 (Version 2)
Quarter: 2013Q1

REPORT INFORMATION
  Report Type: Spontaneous
  Country: IT (occurrence: IT)
  Receive Date: 20130305
  Receipt Date: 20130314
  Transmission Date: 20140127
  Serious: Yes (Death, Hospitalization)
  Sender: FDA-Public Use
  Company Number: IT-BAYER-2013-027878

PATIENT
  Age: 90 Year
  Sex: Male

DRUGS (6)
  1. CARDIOASPIRIN [Suspect]
     Dosage: 100 MG, QD
     Route: 048
     Dates: start: 19920101, end: 20120207
  2. DIAMICRON [Concomitant]
     Indication: DIABETES MELLITUS
  3. ENAPREN [Concomitant]
  4. POTASSION [Concomitant]
  5. PROSTIDE [Concomitant]
  6. DEPONIT [Concomitant]
     Indication: MYOCARDIAL ISCHAEMIA

REACTIONS (2)
  - Gastric ulcer perforation [Fatal]
  - Peritonitis [Fatal]
